FAERS Safety Report 23943589 (Version 7)
Quarter: 2025Q1

REPORT INFORMATION
  Report Type: Report from Study
  Country: US (occurrence: US)
  Receive Date: 20240606
  Receipt Date: 20250113
  Transmission Date: 20250409
  Serious: Yes (Other)
  Sender: AMGEN
  Company Number: US-AMGEN-USASL2024108729

PATIENT
  Age: 64 Year
  Sex: Male
  Weight: 58.5 kg

DRUGS (29)
  1. VECTIBIX [Suspect]
     Active Substance: PANITUMUMAB
     Indication: Rectal adenocarcinoma
     Dosage: 517.20 MILLIGRAM, Q2WK (14 DAY, FREQUENCY PER DAY:QD)
     Route: 042
     Dates: start: 20240207, end: 20240509
  2. VECTIBIX [Suspect]
     Active Substance: PANITUMUMAB
     Route: 042
     Dates: start: 2024
  3. VECTIBIX [Suspect]
     Active Substance: PANITUMUMAB
     Route: 042
     Dates: start: 2024
  4. VECTIBIX [Suspect]
     Active Substance: PANITUMUMAB
     Route: 042
     Dates: start: 20240806
  5. VECTIBIX [Suspect]
     Active Substance: PANITUMUMAB
     Route: 042
     Dates: start: 20240903
  6. VECTIBIX [Suspect]
     Active Substance: PANITUMUMAB
     Route: 042
     Dates: start: 20241024
  7. VECTIBIX [Suspect]
     Active Substance: PANITUMUMAB
     Route: 042
     Dates: start: 20241226
  8. BEVACIZUMAB [Concomitant]
     Active Substance: BEVACIZUMAB
     Indication: Product used for unknown indication
     Route: 042
     Dates: start: 20240702
  9. ALOXI [Concomitant]
     Active Substance: PALONOSETRON HYDROCHLORIDE
     Indication: Product used for unknown indication
     Route: 042
     Dates: start: 20240702
  10. DEXAMETHASONE [Concomitant]
     Active Substance: DEXAMETHASONE
     Indication: Product used for unknown indication
     Route: 042
     Dates: start: 20240702
  11. SODIUM CHLORIDE [Concomitant]
     Active Substance: SODIUM CHLORIDE
     Indication: Product used for unknown indication
     Route: 042
     Dates: start: 20240702
  12. ATROPINE [Concomitant]
     Active Substance: ATROPINE
     Route: 042
     Dates: start: 20240903
  13. ADRUCIL [Concomitant]
     Active Substance: FLUOROURACIL
     Route: 042
     Dates: start: 20240903
  14. CAMPTOSAR [Concomitant]
     Active Substance: IRINOTECAN HYDROCHLORIDE
     Route: 042
     Dates: start: 20240903
  15. LEUCOVORIN [Concomitant]
     Active Substance: LEUCOVORIN\LEUCOVORIN CALCIUM
     Route: 042
     Dates: start: 20240903
  16. ZIRABEV [Concomitant]
     Active Substance: BEVACIZUMAB-BVZR
     Route: 042
     Dates: start: 20240903
  17. DECADRON [Concomitant]
     Active Substance: DEXAMETHASONE
     Route: 042
     Dates: start: 20240903
  18. ANTIVERT [Concomitant]
     Active Substance: MECLIZINE HYDROCHLORIDE
     Dates: start: 20240422
  19. LIDOCAINE [Concomitant]
     Active Substance: LIDOCAINE
     Dates: start: 20240920
  20. DIPHENHYDRAMINE [Concomitant]
     Active Substance: DIPHENHYDRAMINE
  21. PROTONIX [Concomitant]
     Active Substance: PANTOPRAZOLE SODIUM
  22. FOLVITE [Concomitant]
     Active Substance: FOLIC ACID
     Route: 048
     Dates: start: 20220916
  23. DILAUDID [Concomitant]
     Active Substance: HYDROMORPHONE HYDROCHLORIDE
     Route: 048
     Dates: start: 20240930
  24. LOMOTIL [Concomitant]
     Active Substance: ATROPINE SULFATE\DIPHENOXYLATE HYDROCHLORIDE
     Dates: start: 20240930
  25. POTASSIUM CHLORIDE [Concomitant]
     Active Substance: POTASSIUM CHLORIDE
     Route: 051
  26. REMERON [Concomitant]
     Active Substance: MIRTAZAPINE
     Indication: Dizziness
     Route: 048
     Dates: start: 20240923, end: 20241028
  27. DOXYCYCLINE HYDROCHLORIDE [Concomitant]
     Active Substance: DOXYCYCLINE HYDROCHLORIDE
     Dates: start: 20240520
  28. FERROUS SULFATE [Concomitant]
     Active Substance: FERROUS SULFATE
  29. ZOFRAN [Concomitant]
     Active Substance: ONDANSETRON HYDROCHLORIDE
     Route: 040
     Dates: start: 20241226

REACTIONS (1)
  - Rectal adenocarcinoma [Unknown]

NARRATIVE: CASE EVENT DATE: 20240101
